FAERS Safety Report 4774475-2 (Version None)
Quarter: 2005Q3

REPORT INFORMATION
  Report Type: 
  Country: None (occurrence: None)
  Receive Date: 20050919
  Receipt Date: 20050919
  Transmission Date: 20060218
  Serious: Yes (Hospitalization)
  Sender: FDA-Public Use
  Company Number: None

PATIENT
  Age: 66 Year
  Sex: Male
  Weight: 108.8633 kg

DRUGS (11)
  1. BIAXIN [Suspect]
     Indication: MULTIPLE MYELOMA
     Dosage: 250 MG BID PO
     Route: 048
     Dates: start: 20050429, end: 20050913
  2. DECADRON SRC [Suspect]
     Indication: MULTIPLE MYELOMA
     Dosage: 20 MG PO
     Route: 048
     Dates: start: 20050429, end: 20050913
  3. REVLIMID [Suspect]
     Indication: MULTIPLE MYELOMA
     Dosage: 25 MG PO
     Route: 048
     Dates: start: 20050429, end: 20050913
  4. CARDIZEM [Concomitant]
  5. K-DW [Concomitant]
  6. MAGNESIUM OXIDE [Concomitant]
  7. CALCIUM GLUCONATE [Concomitant]
  8. VITAMIN D [Concomitant]
  9. SNYTHROID [Concomitant]
  10. KEFLEX [Concomitant]
  11. TOPROL-XL [Concomitant]

REACTIONS (2)
  - CELLULITIS [None]
  - DRUG TOXICITY [None]
